FAERS Safety Report 16024647 (Version 4)
Quarter: 2020Q2

REPORT INFORMATION
  Report Type: Spontaneous
  Country: US (occurrence: US)
  Receive Date: 20190301
  Receipt Date: 20200515
  Transmission Date: 20200713
  Serious: Yes (Other)
  Sender: FDA-Public Use
  Company Number: US-LEXICON PHARMACEUTICALS, INC-19-1606-00174

PATIENT
  Age: 39 Year
  Sex: Female

DRUGS (20)
  1. TELOTRISTAT ETHYL [Suspect]
     Active Substance: TELOTRISTAT ETHYL
     Indication: CARCINOID TUMOUR
  2. LOSARTAN. [Concomitant]
     Active Substance: LOSARTAN
  3. POTASSIUM CHLORIDE. [Concomitant]
     Active Substance: POTASSIUM CHLORIDE
  4. OCTREOTIDE. [Concomitant]
     Active Substance: OCTREOTIDE
  5. LOMOTIL [Concomitant]
     Active Substance: ATROPINE SULFATE\DIPHENOXYLATE HYDROCHLORIDE
  6. OPIUM TINCTURE [Concomitant]
     Active Substance: MORPHINE
  7. GLUCAGON EMERGENCY [Concomitant]
  8. SANDOSTATIN [Concomitant]
     Active Substance: OCTREOTIDE ACETATE
  9. COMPAZINE [Concomitant]
     Active Substance: PROCHLORPERAZINE MALEATE
  10. AMLODIPINE [Concomitant]
     Active Substance: AMLODIPINE BESYLATE
  11. TELOTRISTAT ETHYL [Suspect]
     Active Substance: TELOTRISTAT ETHYL
     Indication: CARCINOID SYNDROME
     Route: 048
     Dates: start: 20181227
  12. TELOTRISTAT ETHYL [Suspect]
     Active Substance: TELOTRISTAT ETHYL
     Indication: CARCINOID TUMOUR
  13. HUMALOG [Concomitant]
     Active Substance: INSULIN LISPRO
  14. LOPERAMIDE [Concomitant]
     Active Substance: LOPERAMIDE
  15. PRENISOLONE [Concomitant]
     Active Substance: PREDNISOLONE
  16. NORTRIPTYLINE [Concomitant]
     Active Substance: NORTRIPTYLINE
  17. AFINITOR [Concomitant]
     Active Substance: EVEROLIMUS
  18. ONDANSETRON [Concomitant]
     Active Substance: ONDANSETRON
  19. PRAVASTATIN. [Concomitant]
     Active Substance: PRAVASTATIN
  20. PROCHLORPERAZINE. [Concomitant]
     Active Substance: PROCHLORPERAZINE

REACTIONS (6)
  - Disease progression [Unknown]
  - Headache [Unknown]
  - Nausea [Recovered/Resolved]
  - Radiotherapy [Unknown]
  - Rhinorrhoea [Recovered/Resolved]
  - Cough [Recovered/Resolved]

NARRATIVE: CASE EVENT DATE: 20181228
